FAERS Safety Report 9335168 (Version 1)
Quarter: 2013Q2

REPORT INFORMATION
  Report Type: Spontaneous
  Country: JP (occurrence: JP)
  Receive Date: 20130606
  Receipt Date: 20130606
  Transmission Date: 20140414
  Serious: Yes (Hospitalization)
  Sender: FDA-Public Use
  Company Number: JP-GLAXOSMITHKLINE-B0877700A

PATIENT
  Age: 69 Year
  Sex: Female

DRUGS (6)
  1. LAMICTAL [Suspect]
     Indication: BIPOLAR I DISORDER
     Dosage: 25MG ALTERNATE DAYS
     Route: 048
     Dates: start: 20130205, end: 20130217
  2. LAMICTAL [Suspect]
     Indication: BIPOLAR I DISORDER
     Dosage: 25MG PER DAY
     Route: 048
     Dates: start: 20130218, end: 20130228
  3. DEPAKENE-R [Suspect]
     Indication: BIPOLAR I DISORDER
     Dosage: 400MG TWICE PER DAY
     Route: 048
     Dates: start: 20120524, end: 20121130
  4. DEPAKENE-R [Suspect]
     Indication: BIPOLAR I DISORDER
     Dosage: 800MG TWICE PER DAY
     Route: 048
     Dates: start: 20121201, end: 20130228
  5. ABILIFY [Suspect]
     Indication: BIPOLAR I DISORDER
     Dosage: 12MG PER DAY
     Route: 048
     Dates: start: 20130218, end: 20130228
  6. ABILIFY [Concomitant]
     Indication: BIPOLAR I DISORDER
     Dosage: 24MG PER DAY
     Route: 048
     Dates: start: 20130122, end: 20130217

REACTIONS (14)
  - Stevens-Johnson syndrome [Unknown]
  - Oculomucocutaneous syndrome [Unknown]
  - Erythema multiforme [Unknown]
  - Erythema multiforme [Unknown]
  - Enanthema [Unknown]
  - Face oedema [Unknown]
  - Rash generalised [Recovering/Resolving]
  - Lip dry [Recovering/Resolving]
  - Erythema [Recovering/Resolving]
  - Drug eruption [Unknown]
  - Lip swelling [Unknown]
  - Erythema [Unknown]
  - Hypertonic bladder [Unknown]
  - Insomnia [Unknown]
